FAERS Safety Report 15218533 (Version 1)
Quarter: 2018Q3

REPORT INFORMATION
  Report Type: Spontaneous
  Country: US (occurrence: US)
  Receive Date: 20180730
  Receipt Date: 20180730
  Transmission Date: 20181010
  Serious: No
  Sender: FDA-Public Use
  Company Number: US-009507513-1101USA01959

PATIENT
  Age: 35 Year
  Sex: Female

DRUGS (9)
  1. LOPINAVIR (+) RITONAVIR [Suspect]
     Active Substance: LOPINAVIR\RITONAVIR
     Dosage: 4 DF, QD
     Route: 048
  2. RITONAVIR. [Suspect]
     Active Substance: RITONAVIR
     Dosage: 200 DF, QD
     Route: 048
     Dates: start: 20100408
  3. TENOFOVIR DISOPROXIL FUMARATE. [Suspect]
     Active Substance: TENOFOVIR DISOPROXIL FUMARATE
     Dosage: 300 DF, QD
     Route: 048
     Dates: start: 20100408
  4. ZIDOVUDINE. [Suspect]
     Active Substance: ZIDOVUDINE
     Dosage: 2 DF, QD
     Route: 042
     Dates: start: 20100520
  5. DIDANOSINE. [Suspect]
     Active Substance: DIDANOSINE
     Dosage: 400 DF, QD
     Route: 048
  6. ISENTRESS [Suspect]
     Active Substance: RALTEGRAVIR POTASSIUM
     Dosage: 400
     Route: 048
     Dates: start: 20100408
  7. ZIDOVUDINE. [Suspect]
     Active Substance: ZIDOVUDINE
     Dosage: 600 DF, QD
     Route: 048
  8. ZIDOVUDINE. [Suspect]
     Active Substance: ZIDOVUDINE
     Dosage: 1 DF, QD
     Route: 042
     Dates: start: 20100520
  9. DARUNAVIR [Suspect]
     Active Substance: DARUNAVIR
     Dosage: 1200 DF, QD
     Route: 048
     Dates: start: 20100408

REACTIONS (2)
  - Maternal exposure during pregnancy [Recovered/Resolved]
  - No adverse event [Unknown]
